FAERS Safety Report 6275232-0 (Version None)
Quarter: 2009Q3

REPORT INFORMATION
  Report Type: 
  Country: None (occurrence: None)
  Receive Date: 20090721
  Receipt Date: 20090709
  Transmission Date: 20100115
  Serious: Yes (Hospitalization)
  Sender: FDA-Public Use
  Company Number: US-WYE-H10074209

PATIENT
  Age: 57 Year
  Sex: Male
  Weight: 122.58 kg

DRUGS (2)
  1. ADVIL [Suspect]
     Indication: PAIN
     Dosage: 2 TABLETS AS NEEDED
     Route: 048
  2. LISINOPRIL [Interacting]

REACTIONS (2)
  - DRUG INTERACTION [None]
  - RENAL FAILURE [None]
